FAERS Safety Report 18591207 (Version 1)
Quarter: 2020Q4

REPORT INFORMATION
  Report Type: Spontaneous
  Country: HN (occurrence: HN)
  Receive Date: 20201208
  Receipt Date: 20201208
  Transmission Date: 20210114
  Serious: Yes (Other)
  Sender: FDA-Public Use
  Company Number: HN-PFIZER INC-2020480723

PATIENT
  Age: 85 Year
  Sex: Female

DRUGS (1)
  1. CADUET [Suspect]
     Active Substance: AMLODIPINE BESYLATE\ATORVASTATIN CALCIUM
     Dosage: 1 DF, DAILY
     Route: 048
     Dates: start: 2010

REACTIONS (3)
  - Alanine aminotransferase abnormal [Unknown]
  - Dementia Alzheimer^s type [Unknown]
  - Aspartate aminotransferase abnormal [Unknown]
